FAERS Safety Report 8260924-4 (Version None)
Quarter: 2012Q2

REPORT INFORMATION
  Report Type: 
  Country: None (occurrence: None)
  Receive Date: 20120405
  Receipt Date: 20120329
  Transmission Date: 20120825
  Serious: Yes (Other)
  Sender: FDA-Public Use
  Company Number: US-PFIZER INC-2012081465

PATIENT
  Sex: Female

DRUGS (5)
  1. CELEXA [Concomitant]
     Dosage: UNK
  2. ATRIPLA [Concomitant]
     Dosage: UNK
  3. PRISTIQ [Suspect]
     Indication: MAJOR DEPRESSION
     Dosage: 50 MG, (T PO QAM)
     Route: 048
  4. BUSPAR [Concomitant]
     Dosage: UNK
  5. TRAZODONE [Concomitant]
     Dosage: UNK

REACTIONS (1)
  - MAJOR DEPRESSION [None]
